FAERS Safety Report 8346250-3 (Version None)
Quarter: 2012Q2

REPORT INFORMATION
  Report Type: 
  Country: None (occurrence: None)
  Receive Date: 20120507
  Receipt Date: 20120420
  Transmission Date: 20120825
  Serious: Yes (Hospitalization)
  Sender: FDA-Public Use
  Company Number: UTC-017629

PATIENT
  Age: 33 Year
  Sex: Female
  Weight: 64.54 kg

DRUGS (1)
  1. REMODULIN [Suspect]
     Indication: COR PULMONALE CHRONIC
     Dosage: (23 NANGM),INTRAVENOUS
     Route: 042
     Dates: start: 20050321

REACTIONS (1)
  - INFECTION [None]
